FAERS Safety Report 19647506 (Version 1)
Quarter: 2021Q3

REPORT INFORMATION
  Report Type: Spontaneous
  Country: NL (occurrence: NL)
  Receive Date: 20210802
  Receipt Date: 20210802
  Transmission Date: 20211014
  Serious: Yes (Other)
  Sender: FDA-Public Use
  Company Number: NL-SUN PHARMACEUTICAL INDUSTRIES LTD-2021RR-306375

PATIENT
  Age: 81 Year
  Sex: Female
  Weight: 56 kg

DRUGS (13)
  1. CLOPIDOGREL TABLET   75MG / BRAND NAME NOT SPECIFIEDCLOPIDOGREL TAB... [Concomitant]
     Indication: PRODUCT USED FOR UNKNOWN INDICATION
     Dosage: TABLET, 75 MG (MILLIGRAM) ()
     Route: 065
  2. AMILORIDE/HYDROCHLOORTHIAZIDE TABLET 5/50MG / BRAND NAME NOT SPECIF... [Concomitant]
     Indication: PRODUCT USED FOR UNKNOWN INDICATION
     Dosage: TABLET, 5/50 MG (MILLIGRAM) ()
     Route: 065
  3. SIMVASTATINE TABLET FO 40MG / BRAND NAME NOT SPECIFIEDSIMVASTATINE ... [Concomitant]
     Active Substance: SIMVASTATIN
     Indication: PRODUCT USED FOR UNKNOWN INDICATION
     Dosage: FILM?COATED TABLET, 40 MG (MILLIGRAMS) ()
     Route: 065
  4. CALCIUMCARB/COLECALC KAUWTB 2,5G/880IE (1000MG CA) / BRAND NAME NOT... [Concomitant]
     Indication: PRODUCT USED FOR UNKNOWN INDICATION
     Dosage: CHEWABLE TABLET, 2.5 G (GRAMS)/880 UNITS ()
     Route: 065
  5. METOPROLOL TABLET MGA 100MG (SUCCINAAT) / BRAND NAME NOT SPECIFIEDM... [Concomitant]
     Indication: PRODUCT USED FOR UNKNOWN INDICATION
     Dosage: MODIFIED?RELEASE TABLET, 100 MG (MILLIGRAMS) ()
     Route: 065
  6. TEMAZEPAM CAPSULE 10MG / BRAND NAME NOT SPECIFIEDTEMAZEPAM CAPSULE ... [Concomitant]
     Indication: PRODUCT USED FOR UNKNOWN INDICATION
     Dosage: CAPSULE, 10 MG (MILLIGRAM) ()
     Route: 065
  7. LETROZOLE. [Suspect]
     Active Substance: LETROZOLE
     Indication: BREAST CANCER
     Dosage: 2.5 MILLIGRAM, DAILY, TABLET
     Route: 065
  8. PANTOPRAZOL TABLET MSR 20MG / BRAND NAME NOT SPECIFIEDPANTOPRAZOL T... [Concomitant]
     Indication: PRODUCT USED FOR UNKNOWN INDICATION
     Dosage: GASTRO?RESISTANT TABLET, 20 MG (MILLIGRAMS) ()
     Route: 065
  9. CETOMACROGOL CREME / BRAND NAME NOT SPECIFIEDCETOMACROGOL CREME [Concomitant]
     Indication: PRODUCT USED FOR UNKNOWN INDICATION
     Dosage: CREAM ()
     Route: 065
  10. MIRTAZAPINE TABLET 15MG / BRAND NAME NOT SPECIFIEDMIRTAZAPINE TABLE... [Concomitant]
     Indication: PRODUCT USED FOR UNKNOWN INDICATION
     Dosage: TABLET, 15 MG (MILLIGRAM) ()
     Route: 065
  11. SALBUTAMOL AEROSOL 100UG/DO / BRAND NAME NOT SPECIFIEDSALBUTAMOL AE... [Concomitant]
     Indication: PRODUCT USED FOR UNKNOWN INDICATION
     Dosage: AEROSOL, 100 MICROGRAMS PER DOSE
     Route: 065
  12. DEXTRAN 70/HYPROMELLOSE OOGDR 1/3MG/ML / BRAND NAME NOT SPECIFIEDDE... [Concomitant]
     Indication: PRODUCT USED FOR UNKNOWN INDICATION
     Dosage: EYE DROPS, 1/3 MG/ML (MILLIGRAMS PER MILLILITER) ()
     Route: 065
  13. TIOTROPIUM/OLODATEROL VERNEVELVLST 2,5/2,5UG/DO / SPIOLTO RESPIMAT ... [Concomitant]
     Indication: PRODUCT USED FOR UNKNOWN INDICATION
     Dosage: NEBULISER FLUID, 2.5/2.5 ?G/DOSE (MICROGRAMS PER DOSE) ()
     Route: 065

REACTIONS (3)
  - Cognitive disorder [Recovering/Resolving]
  - Gait disturbance [Recovering/Resolving]
  - Depressed mood [Recovering/Resolving]

NARRATIVE: CASE EVENT DATE: 20190601
